FAERS Safety Report 5607473-7 (Version None)
Quarter: 2008Q1

REPORT INFORMATION
  Report Type: 
  Country: None (occurrence: None)
  Receive Date: 20080125
  Receipt Date: 20080111
  Transmission Date: 20080703
  Serious: Yes (Hospitalization, Other)
  Sender: FDA-Public Use
  Company Number: 2008P1000008

PATIENT
  Age: 19 Year
  Sex: Female

DRUGS (3)
  1. BUSULFAN (BUSULFAN) [Suspect]
     Indication: STEM CELL TRANSPLANT
     Dosage: 24 ML; X1; IV
     Route: 042
     Dates: start: 20071012, end: 20071013
  2. FLUDARABINE PHOSPHATE [Concomitant]
  3. VALPROATE SODIUM [Concomitant]

REACTIONS (5)
  - BRONCHOPULMONARY ASPERGILLOSIS [None]
  - CORD BLOOD TRANSPLANT THERAPY [None]
  - CYTOMEGALOVIRUS VIRAEMIA [None]
  - VENOOCCLUSIVE LIVER DISEASE [None]
  - VIRAL HAEMORRHAGIC CYSTITIS [None]
